FAERS Safety Report 5853443-3 (Version None)
Quarter: 2008Q3

REPORT INFORMATION
  Report Type: 
  Country: None (occurrence: None)
  Receive Date: 20080820
  Receipt Date: 20080814
  Transmission Date: 20090109
  Serious: Yes (Other)
  Sender: FDA-Public Use
  Company Number: 2008SP015304

PATIENT
  Age: 59 Year
  Sex: Female

DRUGS (3)
  1. INTRON A [Suspect]
     Indication: MALIGNANT MELANOMA
     Dosage: 40 MIU IV; 20 MIU UNK; 10 MIU TIW
     Route: 042
     Dates: end: 20080602
  2. INTRON A [Suspect]
     Indication: MALIGNANT MELANOMA
     Dosage: 40 MIU IV; 20 MIU UNK; 10 MIU TIW
     Route: 042
     Dates: end: 20080710
  3. INTRON A [Suspect]
     Indication: MALIGNANT MELANOMA
     Dosage: 40 MIU IV; 20 MIU UNK; 10 MIU TIW
     Route: 042
     Dates: start: 20080428

REACTIONS (5)
  - MALIGNANT MELANOMA [None]
  - OEDEMA PERIPHERAL [None]
  - PAIN IN EXTREMITY [None]
  - POLLAKIURIA [None]
  - URINARY INCONTINENCE [None]
